FAERS Safety Report 6201281-4 (Version None)
Quarter: 2009Q2

REPORT INFORMATION
  Report Type: 
  Country: None (occurrence: None)
  Receive Date: 20090526
  Receipt Date: 20090514
  Transmission Date: 20091009
  Serious: Yes (Other)
  Sender: FDA-Public Use
  Company Number: US-ROCHE-467610

PATIENT
  Sex: Male
  Weight: 56.7 kg

DRUGS (2)
  1. ACCUTANE [Suspect]
     Indication: ACNE
     Route: 048
     Dates: start: 19990606, end: 19991018
  2. ALBUTEROL [Concomitant]
     Indication: ASTHMA
     Route: 055
     Dates: start: 19990708

REACTIONS (8)
  - COLITIS ULCERATIVE [None]
  - CROHN'S DISEASE [None]
  - DENTAL CARIES [None]
  - INFLAMMATORY BOWEL DISEASE [None]
  - PAIN IN EXTREMITY [None]
  - SLEEP DISORDER [None]
  - TOOTH IMPACTED [None]
  - WEIGHT DECREASED [None]
